FAERS Safety Report 4648528-3 (Version None)
Quarter: 2005Q2

REPORT INFORMATION
  Report Type: 
  Country: None (occurrence: None)
  Receive Date: 20050429
  Receipt Date: 20050419
  Transmission Date: 20051028
  Serious: Yes (Other)
  Sender: FDA-Public Use
  Company Number: PHNR2005AU00782

PATIENT
  Age: 35 Year
  Sex: Male

DRUGS (4)
  1. CLOZARIL [Suspect]
     Dosage: 0 - 575 MG, DAILY
     Dates: start: 19930909, end: 20050205
  2. AMISULPRIDE [Concomitant]
  3. NEXIUM [Concomitant]
  4. ATENOLOL [Concomitant]

REACTIONS (20)
  - ANAEMIA [None]
  - ANAESTHESIA [None]
  - ASPIRATION BONE MARROW [None]
  - BACK INJURY [None]
  - BIOPSY BONE MARROW [None]
  - BLOOD DISORDER [None]
  - BONE MARROW DISORDER [None]
  - FALL [None]
  - HAEMATOCRIT DECREASED [None]
  - HAEMOGLOBIN DECREASED [None]
  - LYMPHOCYTE COUNT DECREASED [None]
  - MEAN CELL HAEMOGLOBIN DECREASED [None]
  - MEAN CELL VOLUME DECREASED [None]
  - MICROCYTIC ANAEMIA [None]
  - NEUTROPHIL COUNT DECREASED [None]
  - PANCYTOPENIA [None]
  - SPLENOMEGALY [None]
  - THROMBOCYTOPENIA [None]
  - VOMITING [None]
  - WHITE BLOOD CELL COUNT DECREASED [None]
